FAERS Safety Report 24604622 (Version 2)
Quarter: 2024Q4

REPORT INFORMATION
  Report Type: Spontaneous
  Country: RU (occurrence: RU)
  Receive Date: 20241111
  Receipt Date: 20241115
  Transmission Date: 20250114
  Serious: Yes (Death)
  Sender: ROCHE
  Company Number: RU-BoehringerIngelheim-2024-BI-060315

PATIENT
  Age: 94 Year
  Sex: Female
  Weight: 80 kg

DRUGS (4)
  1. METALYSE [Suspect]
     Active Substance: TENECTEPLASE
     Indication: Acute coronary syndrome
     Dosage: DOSE IS UNKNOWN
     Route: 042
     Dates: start: 20241021, end: 20241021
  2. ASPIRIN [Concomitant]
     Active Substance: ASPIRIN
     Indication: Acute coronary syndrome
     Route: 048
     Dates: start: 20241021, end: 20241022
  3. CLOPIDOGREL [Concomitant]
     Active Substance: CLOPIDOGREL BISULFATE
     Indication: Acute coronary syndrome
     Route: 048
     Dates: start: 20241021, end: 20241022
  4. HEPARIN [Concomitant]
     Active Substance: HEPARIN SODIUM
     Indication: Acute coronary syndrome
     Dosage: DOSE IS UNKNOWN
     Route: 042
     Dates: start: 20241021, end: 20241022

REACTIONS (4)
  - Pain [Fatal]
  - Cardiogenic shock [Fatal]
  - Blood pressure decreased [Fatal]
  - Electrocardiogram normal [Fatal]

NARRATIVE: CASE EVENT DATE: 20241021
